FAERS Safety Report 25826690 (Version 2)
Quarter: 2025Q3

REPORT INFORMATION
  Report Type: Report from Study
  Country: US (occurrence: US)
  Receive Date: 20250920
  Receipt Date: 20250927
  Transmission Date: 20251021
  Serious: Yes (Hospitalization)
  Sender: ABBVIE
  Company Number: US-ABBVIE-6466817

PATIENT
  Age: 65 Year
  Sex: Male

DRUGS (3)
  1. VENCLEXTA [Suspect]
     Active Substance: VENETOCLAX
     Indication: Chronic lymphocytic leukaemia
     Dosage: MISSED 6 DOSE
     Route: 048
     Dates: start: 202502, end: 202508
  2. VENCLEXTA [Suspect]
     Active Substance: VENETOCLAX
     Indication: Chronic lymphocytic leukaemia
     Route: 048
     Dates: start: 2025, end: 20250914
  3. VENCLEXTA [Suspect]
     Active Substance: VENETOCLAX
     Indication: Chronic lymphocytic leukaemia
     Route: 048
     Dates: start: 20250917

REACTIONS (4)
  - Vomiting projectile [Unknown]
  - Nephrolithiasis [Unknown]
  - Urosepsis [Unknown]
  - Bone pain [Unknown]

NARRATIVE: CASE EVENT DATE: 20250101
